FAERS Safety Report 10901495 (Version 4)
Quarter: 2015Q3

REPORT INFORMATION
  Report Type: Report from Study
  Country: JP (occurrence: JP)
  Receive Date: 20150310
  Receipt Date: 20150929
  Transmission Date: 20151125
  Serious: Yes (Death, Life-Threatening)
  Sender: FDA-Public Use
  Company Number: JP-PFIZER INC-2015081456

PATIENT
  Age: 77 Year
  Sex: Female
  Weight: 41 kg

DRUGS (9)
  1. PRIMPERAN [Concomitant]
     Active Substance: METOCLOPRAMIDE HYDROCHLORIDE
     Dosage: 5 MG, 3X/DAY
     Route: 048
     Dates: start: 20140328, end: 20140416
  2. NEXIUM [Concomitant]
     Active Substance: ESOMEPRAZOLE MAGNESIUM
     Dosage: 20 MG, 1X/DAY
     Route: 048
     Dates: start: 20140401, end: 20140423
  3. CODEINE PHOSPHATE [Concomitant]
     Active Substance: CODEINE PHOSPHATE
     Dosage: 1 G, AS NEEDED
     Route: 048
     Dates: start: 20140318, end: 20140423
  4. RANMARK [Concomitant]
     Active Substance: DENOSUMAB
     Dosage: 120 MG, MONTHLY
     Route: 058
     Dates: start: 20130426, end: 20140414
  5. DENOTAS [Concomitant]
     Active Substance: CALCIUM CARBONATE\CHOLECALCIFEROL\MAGNESIUM CARBONATE
     Dosage: 2 DF, 1X/DAY
     Route: 048
     Dates: start: 20140318, end: 20140423
  6. RINDERON V [Concomitant]
     Active Substance: BETAMETHASONE VALERATE
     Dosage: 1 MG, 2X/DAY
     Route: 042
     Dates: start: 20140324, end: 20140424
  7. XALKORI [Suspect]
     Active Substance: CRIZOTINIB
     Indication: NON-SMALL CELL LUNG CANCER
     Dosage: 250 MG, 2X/DAY
     Route: 048
     Dates: start: 20140328, end: 20140412
  8. GLYCERIN. [Concomitant]
     Active Substance: GLYCERIN
     Dosage: 200 ML, 2X/DAY
     Route: 054
     Dates: start: 20140324, end: 20140424
  9. TAKEPRON [Concomitant]
     Active Substance: LANSOPRAZOLE
     Dosage: 30 MG, 1X/DAY
     Route: 042
     Dates: start: 20140324, end: 20140331

REACTIONS (4)
  - Febrile neutropenia [Recovered/Resolved]
  - Pneumonia [Fatal]
  - White blood cell count decreased [Recovered/Resolved]
  - Platelet count decreased [Not Recovered/Not Resolved]

NARRATIVE: CASE EVENT DATE: 20140407
